FAERS Safety Report 7733398-7 (Version None)
Quarter: 2011Q3

REPORT INFORMATION
  Report Type: 
  Country: None (occurrence: None)
  Receive Date: 20110902
  Receipt Date: 20110902
  Transmission Date: 20111222
  Serious: Yes (Life-Threatening)
  Sender: FDA-Public Use
  Company Number: None

PATIENT
  Sex: Female
  Weight: 162 kg

DRUGS (1)
  1. PROMETHAZINE [Suspect]
     Indication: GASTROENTERITIS VIRAL
     Dosage: 25 MG. 1 EVERY 6
     Dates: start: 20110812, end: 20110813

REACTIONS (3)
  - PALPITATIONS [None]
  - BLOOD PRESSURE INCREASED [None]
  - FEAR [None]
